FAERS Safety Report 7477070-X (Version None)
Quarter: 2011Q2

REPORT INFORMATION
  Report Type: 
  Country: None (occurrence: None)
  Receive Date: 20110512
  Receipt Date: 20110502
  Transmission Date: 20111010
  Serious: Yes (Other)
  Sender: FDA-Public Use
  Company Number: GB-ABBOTT-00H-167-0095848-00

PATIENT
  Age: 12 Year
  Sex: Female

DRUGS (5)
  1. PROPOFOL [Concomitant]
     Indication: INDUCTION OF ANAESTHESIA
     Dosage: 2.5 MG/KG ONCE
     Route: 042
     Dates: start: 20010101, end: 20010101
  2. SEVOFLURANE [Suspect]
     Indication: ANAESTHESIA
     Dosage: 8%
     Route: 055
     Dates: start: 20010101, end: 20010101
  3. NITROUS OXIDE [Concomitant]
     Indication: ANAESTHESIA
     Dosage: WITH OXYGEN AND SEVOFLURANE
     Route: 055
     Dates: start: 20010101, end: 20010101
  4. ISOFLURANE [Concomitant]
     Indication: ANAESTHESIA
     Dates: start: 20010101, end: 20010101
  5. OXYGEN [Concomitant]
     Indication: ANAESTHESIA
     Dosage: WITH SEVOFLURANE AND NITROUS OXIDE
     Route: 055
     Dates: start: 20010101, end: 20010101

REACTIONS (1)
  - ATRIOVENTRICULAR BLOCK SECOND DEGREE [None]
